FAERS Safety Report 10018210 (Version 2)
Quarter: 2014Q1

REPORT INFORMATION
  Report Type: Spontaneous
  Country: US (occurrence: US)
  Receive Date: 20140318
  Receipt Date: 20140318
  Transmission Date: 20141002
  Serious: Yes (Other)
  Sender: FDA-Public Use
  Company Number: US-BRISTOL-MYERS SQUIBB COMPANY-19231356

PATIENT
  Age: 59 Year
  Sex: Male
  Weight: 69.39 kg

DRUGS (4)
  1. ERBITUX [Suspect]
     Indication: SQUAMOUS CELL CARCINOMA
     Dosage: LOADING DOSE:748 UNIT NOS?ESTIMATED DOSE:46MG
     Route: 042
     Dates: start: 20130819
  2. ONDANSETRON [Concomitant]
     Route: 048
     Dates: start: 20130818
  3. DOXYCYCLINE [Concomitant]
     Route: 048
     Dates: start: 20130818
  4. ROXANOL [Concomitant]
     Indication: PAIN
     Route: 048

REACTIONS (2)
  - Chest discomfort [Recovered/Resolved]
  - Rash [Recovered/Resolved]
